FAERS Safety Report 5166980-4 (Version None)
Quarter: 2006Q4

REPORT INFORMATION
  Report Type: 
  Country: None (occurrence: None)
  Receive Date: 20061207
  Receipt Date: 20061123
  Transmission Date: 20070319
  Serious: Yes (Other)
  Sender: FDA-Public Use
  Company Number: PHHO2006GB19877

PATIENT
  Age: 64 Year
  Sex: Female
  Weight: 63.33 kg

DRUGS (2)
  1. FLUVASTATIN [Suspect]
     Indication: OSTEOPOROSIS POSTMENOPAUSAL
     Dosage: DOUBLE BLIND
     Route: 048
     Dates: start: 20061115, end: 20061117
  2. ACLASTA [Suspect]
     Indication: OSTEOPOROSIS POSTMENOPAUSAL
     Dosage: 5 MG
     Route: 042

REACTIONS (8)
  - DEAFNESS [None]
  - DIZZINESS [None]
  - EYE INFLAMMATION [None]
  - EYE PAIN [None]
  - EYE PRURITUS [None]
  - HEADACHE [None]
  - TINNITUS [None]
  - UVEITIS [None]
